FAERS Safety Report 7723578-9 (Version None)
Quarter: 2011Q3

REPORT INFORMATION
  Report Type: 
  Country: None (occurrence: None)
  Receive Date: 20110901
  Receipt Date: 20110825
  Transmission Date: 20111222
  Serious: Yes (Death)
  Sender: FDA-Public Use
  Company Number: GB-SANOFI-AVENTIS-2011SA053373

PATIENT
  Age: 74 Year
  Sex: Female
  Weight: 68 kg

DRUGS (6)
  1. ADCAL-D3 [Concomitant]
     Indication: OSTEOPENIA
     Route: 048
     Dates: start: 20091002
  2. ACETAMINOPHEN [Concomitant]
     Indication: OSTEOARTHRITIS
     Route: 048
     Dates: start: 20030101
  3. DRONEDARONE HCL [Suspect]
     Route: 048
     Dates: start: 20101220
  4. ASPIRIN [Concomitant]
     Route: 048
     Dates: start: 20080704
  5. RAMIPRIL [Concomitant]
     Indication: HYPERTENSION
     Route: 048
     Dates: start: 20080630
  6. TRAMADOL HCL [Concomitant]
     Indication: OSTEOARTHRITIS
     Route: 048
     Dates: start: 20090415

REACTIONS (2)
  - LOSS OF CONSCIOUSNESS [None]
  - SUBDURAL HAEMATOMA [None]
